FAERS Safety Report 5302082-1 (Version None)
Quarter: 2007Q2

REPORT INFORMATION
  Report Type: 
  Country: None (occurrence: None)
  Receive Date: 20070419
  Receipt Date: 20070413
  Transmission Date: 20071010
  Serious: Yes (Hospitalization)
  Sender: FDA-Public Use
  Company Number: JP-GLAXOSMITHKLINE-B0412929A

PATIENT
  Age: 73 Year
  Sex: Male
  Weight: 49 kg

DRUGS (8)
  1. SERETIDE [Suspect]
     Indication: CHRONIC OBSTRUCTIVE PULMONARY DISEASE
     Route: 055
     Dates: start: 20050705, end: 20060215
  2. TERSIGAN [Concomitant]
     Indication: CHRONIC OBSTRUCTIVE PULMONARY DISEASE
     Dosage: .6MG PER DAY
     Route: 055
  3. THEOLONG [Concomitant]
     Indication: CHRONIC OBSTRUCTIVE PULMONARY DISEASE
     Dosage: 400MG PER DAY
     Route: 048
  4. MUCOSAL [Concomitant]
     Indication: CHRONIC OBSTRUCTIVE PULMONARY DISEASE
     Dosage: 45MG PER DAY
     Route: 048
  5. SELBEX [Concomitant]
     Indication: CHRONIC OBSTRUCTIVE PULMONARY DISEASE
     Dosage: 150MG PER DAY
     Route: 048
  6. ISODINE GARGLE [Concomitant]
     Indication: ANTIFUNGAL PROPHYLAXIS
  7. MYONAL [Concomitant]
     Indication: LIGAMENT CALCIFICATION
     Dosage: 150MG PER DAY
     Route: 048
  8. ISONIAZID [Concomitant]

REACTIONS (2)
  - ATYPICAL MYCOBACTERIAL INFECTION [None]
  - HEPATIC FUNCTION ABNORMAL [None]
